FAERS Safety Report 9394657 (Version 2)
Quarter: 2013Q3

REPORT INFORMATION
  Report Type: Spontaneous
  Country: US (occurrence: US)
  Receive Date: 20130711
  Receipt Date: 20130725
  Transmission Date: 20140515
  Serious: Yes (Hospitalization, Other)
  Sender: FDA-Public Use
  Company Number: US-SANOFI-AVENTIS-2013SA069084

PATIENT
  Age: 65 Year
  Sex: Male
  Weight: 91.17 kg

DRUGS (4)
  1. LANTUS SOLOSTAR [Suspect]
     Indication: TYPE 2 DIABETES MELLITUS
     Dosage: DOSAGE: 75 AM AND 75 PM
     Route: 058
     Dates: start: 2006
  2. SOLOSTAR [Suspect]
     Indication: TYPE 2 DIABETES MELLITUS
     Dates: start: 2006
  3. NOVOLOG [Suspect]
  4. HUMALOG [Concomitant]

REACTIONS (2)
  - Oesophageal haemorrhage [Recovered/Resolved]
  - Hepatic cirrhosis [Unknown]
